FAERS Safety Report 6712779-4 (Version None)
Quarter: 2010Q2

REPORT INFORMATION
  Report Type: 
  Country: None (occurrence: None)
  Receive Date: 20100505
  Receipt Date: 20100505
  Transmission Date: 20101027
  Serious: No
  Sender: FDA-Public Use
  Company Number: None

PATIENT
  Age: 4 Year
  Sex: Male
  Weight: 19.0511 kg

DRUGS (2)
  1. CHILDREN'S TYLENOL CHERRY BLAST ACTYAMINPHEN MG PER 1/2 TSP MCNEIL [Suspect]
     Indication: PAIN
     Dosage: 1 1/2 TSP EVERY SIX HOUR PO
     Route: 048
     Dates: start: 20100119, end: 20100124
  2. CHILDREN'S TYLENOL CHERRY BLAST ACTYAMINPHEN MG PER 1/2 TSP MCNEIL [Suspect]
     Indication: PYREXIA
     Dosage: 1 1/2 TSP EVERY SIX HOUR PO
     Route: 048
     Dates: start: 20100119, end: 20100124

REACTIONS (2)
  - PRODUCT QUALITY ISSUE [None]
  - VOMITING [None]
